FAERS Safety Report 24106866 (Version 3)
Quarter: 2024Q3

REPORT INFORMATION
  Report Type: Spontaneous
  Country: US (occurrence: US)
  Receive Date: 20240717
  Receipt Date: 20240808
  Transmission Date: 20241016
  Serious: Yes (Other)
  Sender: MERCK
  Company Number: US-009507513-2407USA010368

PATIENT
  Sex: Male

DRUGS (2)
  1. KEYTRUDA [Suspect]
     Active Substance: PEMBROLIZUMAB
     Indication: Bladder cancer
     Dosage: 200 MILLIGRAM, EVERY 3 WEEKS (Q3W)
     Route: 042
     Dates: start: 20230630, end: 2024
  2. KEYTRUDA [Suspect]
     Active Substance: PEMBROLIZUMAB
     Dosage: 200 MILLIGRAM, EVERY 3 WEEKS (Q3W)
     Route: 042
     Dates: start: 20240710, end: 20240710

REACTIONS (2)
  - Abdominal hernia infection [Unknown]
  - Urinary bladder herniation [Unknown]
